FAERS Safety Report 6462599-3 (Version None)
Quarter: 2009Q4

REPORT INFORMATION
  Report Type: 
  Country: None (occurrence: None)
  Receive Date: 20091130
  Receipt Date: 20091116
  Transmission Date: 20100525
  Serious: Yes (Other)
  Sender: FDA-Public Use
  Company Number: TR-MYLANLABS-2009S1019793

PATIENT
  Age: 45 Year
  Sex: Female

DRUGS (6)
  1. FLUOXETINE [Suspect]
     Indication: MAJOR DEPRESSION
  2. TRAZODONE HCL [Suspect]
     Indication: MAJOR DEPRESSION
  3. VENLAFAXINE [Suspect]
     Indication: MAJOR DEPRESSION
  4. VENLAFAXINE [Suspect]
  5. AMOXICILLIN [Concomitant]
     Indication: TOOTH ABSCESS
  6. SERTRALINE HCL [Concomitant]
     Indication: MAJOR DEPRESSION

REACTIONS (1)
  - THROMBOCYTOPENIA [None]
